FAERS Safety Report 22800451 (Version 3)
Quarter: 2025Q3

REPORT INFORMATION
  Report Type: Spontaneous
  Country: CA (occurrence: CA)
  Receive Date: 20230808
  Receipt Date: 20250718
  Transmission Date: 20251021
  Serious: Yes (Other)
  Sender: MYLAN
  Company Number: CA-MYLANLABS-2023M1081516

PATIENT
  Age: 3 Month
  Sex: Male

DRUGS (48)
  1. VALPROIC ACID [Suspect]
     Active Substance: VALPROIC ACID
     Indication: Epilepsy
  2. VALPROIC ACID [Suspect]
     Active Substance: VALPROIC ACID
     Indication: Seizure
     Route: 065
  3. VALPROIC ACID [Suspect]
     Active Substance: VALPROIC ACID
     Route: 065
  4. VALPROIC ACID [Suspect]
     Active Substance: VALPROIC ACID
  5. LAMOTRIGINE [Suspect]
     Active Substance: LAMOTRIGINE
     Indication: Epilepsy
     Route: 065
  6. LAMOTRIGINE [Suspect]
     Active Substance: LAMOTRIGINE
     Indication: Seizure
  7. LAMOTRIGINE [Suspect]
     Active Substance: LAMOTRIGINE
  8. LAMOTRIGINE [Suspect]
     Active Substance: LAMOTRIGINE
     Route: 065
  9. LAMOTRIGINE [Suspect]
     Active Substance: LAMOTRIGINE
     Route: 048
  10. LAMOTRIGINE [Suspect]
     Active Substance: LAMOTRIGINE
  11. LAMOTRIGINE [Suspect]
     Active Substance: LAMOTRIGINE
  12. LAMOTRIGINE [Suspect]
     Active Substance: LAMOTRIGINE
     Route: 048
  13. TOPIRAMATE [Suspect]
     Active Substance: TOPIRAMATE
     Indication: Epilepsy
  14. TOPIRAMATE [Suspect]
     Active Substance: TOPIRAMATE
     Indication: Seizure
     Route: 065
  15. TOPIRAMATE [Suspect]
     Active Substance: TOPIRAMATE
     Route: 065
  16. TOPIRAMATE [Suspect]
     Active Substance: TOPIRAMATE
  17. PREDNISOLONE [Suspect]
     Active Substance: PREDNISOLONE
     Indication: Epilepsy
  18. PREDNISOLONE [Suspect]
     Active Substance: PREDNISOLONE
     Indication: Seizure
     Route: 065
  19. PREDNISOLONE [Suspect]
     Active Substance: PREDNISOLONE
     Route: 065
  20. PREDNISOLONE [Suspect]
     Active Substance: PREDNISOLONE
  21. VIGABATRIN [Suspect]
     Active Substance: VIGABATRIN
     Indication: Epilepsy
     Route: 065
  22. VIGABATRIN [Suspect]
     Active Substance: VIGABATRIN
     Indication: Seizure
  23. VIGABATRIN [Suspect]
     Active Substance: VIGABATRIN
  24. VIGABATRIN [Suspect]
     Active Substance: VIGABATRIN
     Route: 065
  25. VIGABATRIN [Suspect]
     Active Substance: VIGABATRIN
     Route: 048
  26. VIGABATRIN [Suspect]
     Active Substance: VIGABATRIN
  27. VIGABATRIN [Suspect]
     Active Substance: VIGABATRIN
  28. VIGABATRIN [Suspect]
     Active Substance: VIGABATRIN
     Route: 048
  29. CLOBAZAM [Suspect]
     Active Substance: CLOBAZAM
     Indication: Epilepsy
     Route: 065
  30. CLOBAZAM [Suspect]
     Active Substance: CLOBAZAM
     Indication: Seizure
  31. CLOBAZAM [Suspect]
     Active Substance: CLOBAZAM
  32. CLOBAZAM [Suspect]
     Active Substance: CLOBAZAM
     Route: 065
  33. CLOBAZAM [Suspect]
     Active Substance: CLOBAZAM
     Route: 048
  34. CLOBAZAM [Suspect]
     Active Substance: CLOBAZAM
  35. CLOBAZAM [Suspect]
     Active Substance: CLOBAZAM
  36. CLOBAZAM [Suspect]
     Active Substance: CLOBAZAM
     Route: 048
  37. CANNABIS SATIVA FLOWERING TOP [Suspect]
     Active Substance: CANNABIS SATIVA FLOWERING TOP
     Indication: Epilepsy
  38. CANNABIS SATIVA FLOWERING TOP [Suspect]
     Active Substance: CANNABIS SATIVA FLOWERING TOP
     Indication: Seizure
     Route: 065
  39. CANNABIS SATIVA FLOWERING TOP [Suspect]
     Active Substance: CANNABIS SATIVA FLOWERING TOP
     Route: 065
  40. CANNABIS SATIVA FLOWERING TOP [Suspect]
     Active Substance: CANNABIS SATIVA FLOWERING TOP
  41. RUFINAMIDE [Suspect]
     Active Substance: RUFINAMIDE
     Indication: Epilepsy
     Route: 065
  42. RUFINAMIDE [Suspect]
     Active Substance: RUFINAMIDE
     Indication: Seizure
  43. RUFINAMIDE [Suspect]
     Active Substance: RUFINAMIDE
  44. RUFINAMIDE [Suspect]
     Active Substance: RUFINAMIDE
     Route: 065
  45. RUFINAMIDE [Suspect]
     Active Substance: RUFINAMIDE
     Route: 048
  46. RUFINAMIDE [Suspect]
     Active Substance: RUFINAMIDE
  47. RUFINAMIDE [Suspect]
     Active Substance: RUFINAMIDE
  48. RUFINAMIDE [Suspect]
     Active Substance: RUFINAMIDE
     Route: 048

REACTIONS (4)
  - Product use issue [Unknown]
  - Drug ineffective [Unknown]
  - Treatment failure [Unknown]
  - Therapy non-responder [Unknown]
